FAERS Safety Report 10198885 (Version 2)
Quarter: 2014Q2

REPORT INFORMATION
  Report Type: Spontaneous
  Country: FR (occurrence: FR)
  Receive Date: 20140527
  Receipt Date: 20140527
  Transmission Date: 20141212
  Serious: Yes (Hospitalization)
  Sender: FDA-Public Use
  Company Number: FR-ELI_LILLY_AND_COMPANY-FR201404009025

PATIENT
  Age: 66 Year
  Sex: Male

DRUGS (6)
  1. ALIMTA [Suspect]
     Indication: LUNG NEOPLASM MALIGNANT
     Dosage: 960 MG, CYCLICAL
     Route: 042
     Dates: start: 20140409
  2. CISPLATIN [Concomitant]
     Indication: LUNG ADENOCARCINOMA
     Dosage: 142 MG, CYCLICAL
     Route: 042
     Dates: start: 20140409
  3. VITAMIN B12                        /00056201/ [Concomitant]
     Indication: PREMEDICATION
  4. FOLATE [Concomitant]
     Indication: PREMEDICATION
  5. KARDEGIC [Concomitant]
  6. THERAPEUTIC RADIOPHARMACEUTICALS [Concomitant]
     Indication: LUNG ADENOCARCINOMA

REACTIONS (1)
  - Febrile bone marrow aplasia [Not Recovered/Not Resolved]
